FAERS Safety Report 10684045 (Version 1)
Quarter: 2014Q4

REPORT INFORMATION
  Report Type: Spontaneous
  Country: JP (occurrence: JP)
  Receive Date: 20141230
  Receipt Date: 20141230
  Transmission Date: 20150529
  Serious: Yes (Hospitalization)
  Sender: FDA-Public Use
  Company Number: JP-MYLANLABS-2014M1015695

PATIENT

DRUGS (1)
  1. RISPERIDONE ORAL SOLUTION 0.5MG/0.5ML ^MYLAN^ [Suspect]
     Active Substance: RISPERIDONE
     Indication: SCHIZOPHRENIA
     Dosage: 12 MG, QD
     Route: 065

REACTIONS (2)
  - Psychotic disorder [Recovering/Resolving]
  - Rebound effect [Recovering/Resolving]
